FAERS Safety Report 8949440 (Version 1)
Quarter: 2012Q4

REPORT INFORMATION
  Report Type: 
  Country: IT (occurrence: IT)
  Receive Date: 20121206
  Receipt Date: 20121206
  Transmission Date: 20130627
  Serious: Yes (Hospitalization)
  Sender: FDA-Public Use
  Company Number: IT-TEVA-373231ISR

PATIENT
  Sex: Male

DRUGS (2)
  1. FUROSEMIDE [Suspect]
  2. POTASSIO CLORURO [Suspect]

REACTIONS (2)
  - Hyperkalaemia [Recovering/Resolving]
  - Renal failure acute [Recovering/Resolving]
